FAERS Safety Report 8318847-8 (Version None)
Quarter: 2012Q2

REPORT INFORMATION
  Report Type: 
  Country: None (occurrence: None)
  Receive Date: 20120426
  Receipt Date: 20120426
  Transmission Date: 20120825
  Serious: Yes (Life-Threatening)
  Sender: FDA-Public Use
  Company Number: None

PATIENT
  Sex: Female
  Weight: 99.7913 kg

DRUGS (1)
  1. ENALAPRIL MALEATE [Suspect]
     Indication: DRUG DISPENSING ERROR
     Dosage: 40MG TOOK 2 - 20MG
     Dates: start: 20111027

REACTIONS (5)
  - WRONG DRUG ADMINISTERED [None]
  - UNEVALUABLE EVENT [None]
  - OVERDOSE [None]
  - DRUG DISPENSING ERROR [None]
  - BLOOD PRESSURE DECREASED [None]
